FAERS Safety Report 5793301-6 (Version None)
Quarter: 2008Q2

REPORT INFORMATION
  Report Type: 
  Country: None (occurrence: None)
  Receive Date: 20080627
  Receipt Date: 20080619
  Transmission Date: 20081010
  Serious: Yes (Hospitalization, Other)
  Sender: FDA-Public Use
  Company Number: US-ABBOTT-08P-163-0459006-00

PATIENT
  Sex: Female
  Weight: 59.02 kg

DRUGS (7)
  1. HUMIRA [Suspect]
     Indication: RHEUMATOID ARTHRITIS
     Route: 058
     Dates: start: 20060101, end: 20071201
  2. HUMIRA [Suspect]
     Route: 058
     Dates: start: 20080501
  3. METHOTREXATE [Concomitant]
     Indication: RHEUMATOID ARTHRITIS
     Route: 048
  4. NOT REPORTED MEDICATION [Concomitant]
     Indication: HYPERTENSION
     Route: 048
  5. NOT REPORTED MEDICATION [Concomitant]
     Indication: BLOOD CHOLESTEROL
     Route: 048
  6. CLOPIDOGREL [Concomitant]
     Indication: ANTICOAGULANT THERAPY
     Route: 048
  7. LEVOTHYROXINE SODIUM [Concomitant]
     Indication: THYROID DISORDER
     Route: 048

REACTIONS (2)
  - ACCIDENTAL EXPOSURE [None]
  - HIP ARTHROPLASTY [None]
